FAERS Safety Report 7796636-0 (Version None)
Quarter: 2011Q3

REPORT INFORMATION
  Report Type: 
  Country: None (occurrence: None)
  Receive Date: 20110930
  Receipt Date: 20110919
  Transmission Date: 20111222
  Serious: Yes (Hospitalization)
  Sender: FDA-Public Use
  Company Number: TPA2011A05749

PATIENT
  Age: 64 Year
  Sex: Female
  Weight: 113.8529 kg

DRUGS (5)
  1. ACTOS [Suspect]
     Indication: HIP ARTHROPLASTY
     Dosage: 15 MG, 1 IN 1 D, ORAL
     Route: 048
     Dates: start: 20090529
  2. ACTOS [Suspect]
     Indication: TYPE 2 DIABETES MELLITUS
     Dosage: 15 MG, 1 IN 1 D, ORAL
     Route: 048
     Dates: start: 20090529
  3. LISINOPRIL [Concomitant]
  4. METAGLIP (METFORMIN HYDROCHLORIDE, GLIPIZIDE) [Concomitant]
  5. ZOCOR [Concomitant]

REACTIONS (4)
  - WEIGHT INCREASED [None]
  - MICTURITION URGENCY [None]
  - ARTHRALGIA [None]
  - URINARY INCONTINENCE [None]
